FAERS Safety Report 4503592-7 (Version None)
Quarter: 2004Q4

REPORT INFORMATION
  Report Type: 
  Country: None (occurrence: None)
  Receive Date: 20041112
  Receipt Date: 20041029
  Transmission Date: 20050328
  Serious: Yes (Other)
  Sender: FDA-Public Use
  Company Number: 2004-0007690

PATIENT
  Sex: Male

DRUGS (2)
  1. EMTRIVA [Suspect]
     Dosage: 200 MG, ORAL
     Route: 048
  2. LAMIVUDINE (LAMIVUDINE) [Concomitant]

REACTIONS (2)
  - ELECTROCARDIOGRAM QT INTERVAL ABNORMAL [None]
  - LOSS OF CONSCIOUSNESS [None]
